FAERS Safety Report 6202807-7 (Version None)
Quarter: 2009Q2

REPORT INFORMATION
  Report Type: 
  Country: None (occurrence: None)
  Receive Date: 20090526
  Receipt Date: 20090521
  Transmission Date: 20091009
  Serious: No
  Sender: FDA-Public Use
  Company Number: US-B.I. PHARMACEUTICALS,INC./RIDGEFIELD-2009-BP-06298BP

PATIENT
  Age: 81 Year
  Sex: Male

DRUGS (6)
  1. FLOMAX [Suspect]
     Indication: BENIGN PROSTATIC HYPERPLASIA
     Dosage: .4MG
     Route: 048
     Dates: start: 20090501, end: 20090520
  2. NAPROSYN [Concomitant]
     Indication: OSTEOARTHRITIS
  3. ZOCOR [Concomitant]
     Indication: BLOOD CHOLESTEROL INCREASED
  4. ZOLOFT [Concomitant]
     Indication: BLOOD CHOLESTEROL INCREASED
  5. ASPIRIN [Concomitant]
     Indication: PROPHYLAXIS
  6. DIOVAN HCT [Concomitant]
     Indication: BLOOD PRESSURE INCREASED

REACTIONS (2)
  - DIZZINESS [None]
  - PROSTATIC SPECIFIC ANTIGEN INCREASED [None]
